FAERS Safety Report 5909305-6 (Version None)
Quarter: 2008Q4

REPORT INFORMATION
  Report Type: 
  Country: None (occurrence: None)
  Receive Date: 20081006
  Receipt Date: 20080924
  Transmission Date: 20090506
  Serious: Yes (Other)
  Sender: FDA-Public Use
  Company Number: ES-PFIZER INC-2008080616

PATIENT
  Age: 54 Year
  Sex: Female

DRUGS (2)
  1. ZITHROMAX [Suspect]
     Indication: PHARYNGITIS
     Route: 048
     Dates: start: 20080329, end: 20080331
  2. CARVEDILOL [Concomitant]
     Indication: HYPERTENSION
     Route: 048
     Dates: start: 20050622

REACTIONS (6)
  - DYSGEUSIA [None]
  - MYALGIA [None]
  - PAROSMIA [None]
  - TINNITUS [None]
  - VERTIGO [None]
  - VULVOVAGINAL DRYNESS [None]
